FAERS Safety Report 4731348-9 (Version None)
Quarter: 2005Q3

REPORT INFORMATION
  Report Type: 
  Country: None (occurrence: None)
  Receive Date: 20050801
  Receipt Date: 20050801
  Transmission Date: 20060218
  Serious: Yes (Hospitalization)
  Sender: FDA-Public Use
  Company Number: None

PATIENT
  Age: 69 Year
  Sex: Female
  Weight: 53 kg

DRUGS (1)
  1. AMIODARONE     400MG [Suspect]
     Indication: ATRIAL FIBRILLATION
     Dosage: 400MG DAILY ORAL
     Route: 048
     Dates: start: 20010101, end: 20041209

REACTIONS (8)
  - DERMATITIS [None]
  - DRUG TOXICITY [None]
  - HEPATIC FUNCTION ABNORMAL [None]
  - HEPATITIS [None]
  - HYPERTHYROIDISM [None]
  - HYPOALBUMINAEMIA [None]
  - LUNG NEOPLASM [None]
  - NEPHROTIC SYNDROME [None]
